FAERS Safety Report 18260541 (Version 2)
Quarter: 2020Q3

REPORT INFORMATION
  Report Type: Spontaneous
  Country: NL (occurrence: NL)
  Receive Date: 20200914
  Receipt Date: 20200922
  Transmission Date: 20201103
  Serious: Yes (Other)
  Sender: FDA-Public Use
  Company Number: NL-TEVA-2020-NL-1825650

PATIENT
  Age: 63 Year
  Sex: Female
  Weight: 77 kg

DRUGS (2)
  1. FLUOXETINE [Suspect]
     Active Substance: FLUOXETINE HYDROCHLORIDE
     Indication: ANXIETY DISORDER
     Dosage: 20 MILLIGRAM DAILY; THERAPY END DATE : ASKU, FROM FOLLOW UP: PROBABLY AT THE END OF JULY 20 FLUOXETI
     Dates: start: 201007
  2. FLUTICASON?FUROAAT NEUSSPRAY 27,5UG/DO / AVAMYS NEUSSPRAY 27,5MCG/DO F [Concomitant]
     Active Substance: FLUTICASONE
     Dosage: 27.5 MCG / DOSE (MICROGRAMS PER DOSE), THERAPY START DATE AND END DATE : ASKU
     Route: 045

REACTIONS (3)
  - Therapeutic response unexpected [Unknown]
  - Panic reaction [Recovered/Resolved]
  - Amnesia [Recovered/Resolved]

NARRATIVE: CASE EVENT DATE: 20200724
